FAERS Safety Report 6363645-8 (Version None)
Quarter: 2009Q3

REPORT INFORMATION
  Report Type: 
  Country: None (occurrence: None)
  Receive Date: 20090919
  Receipt Date: 20090702
  Transmission Date: 20100115
  Serious: No
  Sender: FDA-Public Use
  Company Number: US-ABBOTT-09P-163-0583676-00

PATIENT
  Sex: Female
  Weight: 26.8 kg

DRUGS (3)
  1. HUMIRA [Suspect]
     Indication: CROHN'S DISEASE
     Route: 058
     Dates: start: 20071201, end: 20080701
  2. HUMIRA [Suspect]
     Dates: start: 20080701, end: 20081101
  3. HUMIRA [Suspect]
     Dates: start: 20081101

REACTIONS (5)
  - ARTHRALGIA [None]
  - CROHN'S DISEASE [None]
  - JOINT STIFFNESS [None]
  - PYREXIA [None]
  - T-LYMPHOCYTE COUNT DECREASED [None]
